FAERS Safety Report 6244915-0 (Version None)
Quarter: 2009Q2

REPORT INFORMATION
  Report Type: 
  Country: None (occurrence: None)
  Receive Date: 20090625
  Receipt Date: 20090612
  Transmission Date: 20091009
  Serious: Yes (Other)
  Sender: FDA-Public Use
  Company Number: PHHY2009CA23499

PATIENT
  Sex: Female

DRUGS (1)
  1. DIOVAN [Suspect]
     Dosage: 1 DF (160 MG)/ DAY
     Route: 048

REACTIONS (6)
  - ANXIETY [None]
  - DEPRESSION [None]
  - HYPERTENSION [None]
  - PALPITATIONS [None]
  - STRESS [None]
  - TREATMENT NONCOMPLIANCE [None]
